FAERS Safety Report 8016250-1 (Version None)
Quarter: 2011Q4

REPORT INFORMATION
  Report Type: 
  Country: None (occurrence: None)
  Receive Date: 20111228
  Receipt Date: 20111228
  Transmission Date: 20120403
  Serious: Yes (Hospitalization)
  Sender: FDA-Public Use
  Company Number: None

PATIENT
  Sex: Female
  Weight: 63.5 kg

DRUGS (1)
  1. BACTRIM DS [Suspect]
     Indication: URINARY TRACT INFECTION
     Dosage: 1 (800/160) BID PO
     Route: 048
     Dates: start: 20110731, end: 20110809

REACTIONS (3)
  - OEDEMA PERIPHERAL [None]
  - RASH ERYTHEMATOUS [None]
  - PRURITUS [None]
